FAERS Safety Report 5339970-6 (Version None)
Quarter: 2007Q2

REPORT INFORMATION
  Report Type: 
  Country: None (occurrence: None)
  Receive Date: 20070529
  Receipt Date: 20070515
  Transmission Date: 20071010
  Serious: Yes (Other)
  Sender: FDA-Public Use
  Company Number: B0471903A

PATIENT
  Age: 11 Year
  Sex: Male

DRUGS (3)
  1. CHLORPROMAZINE HCL [Suspect]
  2. LITHIUN SALT (FORMULATION UNKNOWN) (GENERIC) (LITHIUM SALT) [Suspect]
  3. VALPROIC ACID [Concomitant]

REACTIONS (14)
  - AGGRESSION [None]
  - COGWHEEL RIGIDITY [None]
  - CONFUSIONAL STATE [None]
  - DELIRIUM [None]
  - FATIGUE [None]
  - GLOSSODYNIA [None]
  - HIV INFECTION [None]
  - HOMICIDAL IDEATION [None]
  - HYPOKINESIA [None]
  - MALAISE [None]
  - ORAL CANDIDIASIS [None]
  - SOMNOLENCE [None]
  - SUICIDAL IDEATION [None]
  - TREMOR [None]
